FAERS Safety Report 7680284-7 (Version None)
Quarter: 2011Q3

REPORT INFORMATION
  Report Type: 
  Country: None (occurrence: None)
  Receive Date: 20110812
  Receipt Date: 20110727
  Transmission Date: 20111222
  Serious: Yes (Hospitalization)
  Sender: FDA-Public Use
  Company Number: US-GLAXOSMITHKLINE-A0833785A

PATIENT
  Age: 43 Year
  Sex: Male
  Weight: 115 kg

DRUGS (4)
  1. GLYBURIDE [Concomitant]
  2. LOTREL [Concomitant]
  3. GLUCOPHAGE [Concomitant]
     Dates: end: 20030601
  4. AVANDIA [Suspect]
     Indication: TYPE 2 DIABETES MELLITUS
     Dosage: 8MG PER DAY
     Route: 048
     Dates: start: 20010801, end: 20030620

REACTIONS (3)
  - ISCHAEMIC CARDIOMYOPATHY [None]
  - CARDIAC FAILURE CONGESTIVE [None]
  - MYOCARDIAL INFARCTION [None]
